FAERS Safety Report 4978004-X (Version None)
Quarter: 2006Q2

REPORT INFORMATION
  Report Type: 
  Country: None (occurrence: None)
  Receive Date: 20060420
  Receipt Date: 20060117
  Transmission Date: 20061013
  Serious: Yes (Hospitalization)
  Sender: FDA-Public Use
  Company Number: US-MERCK-0601USA02169

PATIENT
  Age: 68 Year
  Sex: Male
  Weight: 89 kg

DRUGS (5)
  1. VIOXX [Suspect]
     Indication: OSTEOARTHRITIS
     Route: 048
     Dates: start: 20020301, end: 20031211
  2. VIOXX [Suspect]
     Route: 048
     Dates: start: 20020301, end: 20031211
  3. MONOPRIL [Concomitant]
     Indication: HYPERTENSION
     Route: 065
     Dates: start: 19990418, end: 20050404
  4. CAPOTEN [Concomitant]
     Indication: HYPERTENSION
     Route: 065
     Dates: start: 19950314
  5. TOPROL-XL [Concomitant]
     Indication: HYPERTENSION
     Route: 065
     Dates: start: 20000209

REACTIONS (19)
  - AORTIC VALVE INCOMPETENCE [None]
  - AORTIC VALVE STENOSIS [None]
  - BLOOD PRESSURE INCREASED [None]
  - CAROTID ARTERY DISEASE [None]
  - CAROTID BRUIT [None]
  - DIZZINESS [None]
  - DRUG ADMINISTRATION ERROR [None]
  - ERECTILE DYSFUNCTION [None]
  - HERPES ZOSTER [None]
  - HYPERGLYCAEMIA [None]
  - MACULAR DEGENERATION [None]
  - MITRAL VALVE INCOMPETENCE [None]
  - MYOCARDIAL INFARCTION [None]
  - PAIN IN EXTREMITY [None]
  - PULMONARY VALVE DISEASE [None]
  - RETINITIS PIGMENTOSA [None]
  - SINUS BRADYCARDIA [None]
  - SYNOVIAL CYST [None]
  - TRICUSPID VALVE INCOMPETENCE [None]
